FAERS Safety Report 5081709-6 (Version None)
Quarter: 2006Q3

REPORT INFORMATION
  Report Type: 
  Country: None (occurrence: None)
  Receive Date: 20060816
  Receipt Date: 20060804
  Transmission Date: 20061208
  Serious: Yes (Hospitalization)
  Sender: FDA-Public Use
  Company Number: IN-BRISTOL-MYERS SQUIBB COMPANY-13465562

PATIENT
  Age: 26 Year
  Sex: Male

DRUGS (3)
  1. CISPLATIN [Suspect]
     Indication: TESTIS CANCER
     Route: 042
  2. BLEOMYCIN [Suspect]
     Indication: TESTIS CANCER
     Route: 042
  3. ETOPOSIDE [Suspect]
     Indication: TESTIS CANCER
     Route: 042

REACTIONS (1)
  - MYOCARDIAL INFARCTION [None]
